FAERS Safety Report 10420127 (Version 3)
Quarter: 2014Q3

REPORT INFORMATION
  Report Type: Report from Study
  Country: CZ (occurrence: CZ)
  Receive Date: 20140829
  Receipt Date: 20140915
  Transmission Date: 20150326
  Serious: Yes (Life-Threatening, Hospitalization)
  Sender: FDA-Public Use
  Company Number: CZ-ABBVIE-14K-217-1276958-00

PATIENT
  Age: 17 Year
  Sex: Male
  Weight: 68 kg

DRUGS (4)
  1. HUMIRA [Interacting]
     Active Substance: ADALIMUMAB
     Route: 058
     Dates: start: 20131211, end: 20140728
  2. TREXAN [Interacting]
     Active Substance: METHOTREXATE SODIUM
     Indication: JUVENILE IDIOPATHIC ARTHRITIS
     Route: 048
     Dates: start: 2012
  3. TREXAN [Interacting]
     Active Substance: METHOTREXATE SODIUM
     Route: 048
     Dates: start: 20140630, end: 20140725
  4. HUMIRA [Suspect]
     Active Substance: ADALIMUMAB
     Indication: JUVENILE IDIOPATHIC ARTHRITIS
     Route: 058
     Dates: start: 2012

REACTIONS (11)
  - Disseminated intravascular coagulation [Recovered/Resolved]
  - Serum ferritin increased [Recovered/Resolved]
  - Fatigue [Unknown]
  - Drug interaction [Unknown]
  - Cardiovascular disorder [Unknown]
  - Histiocytosis haematophagic [Recovered/Resolved]
  - Hypofibrinogenaemia [Unknown]
  - Anaemia [Recovered/Resolved]
  - Thrombocytopenia [Recovered/Resolved]
  - Lung infiltration [Recovered/Resolved]
  - Leukopenia [Unknown]

NARRATIVE: CASE EVENT DATE: 201407
